FAERS Safety Report 4685725-5 (Version None)
Quarter: 2005Q2

REPORT INFORMATION
  Report Type: 
  Country: None (occurrence: None)
  Receive Date: 20050608
  Receipt Date: 20050524
  Transmission Date: 20051028
  Serious: Yes (Death, Hospitalization, Other)
  Sender: FDA-Public Use
  Company Number: HQWYE5920025AUG04

PATIENT
  Sex: Female

DRUGS (7)
  1. PREMPRO [Suspect]
     Indication: HORMONE REPLACEMENT THERAPY
  2. CLIMARA [Suspect]
     Indication: HORMONE REPLACEMENT THERAPY
  3. FEMHRT [Suspect]
     Indication: HORMONE REPLACEMENT THERAPY
  4. MEDROXYPROGESTERONE ACETATE [Suspect]
     Indication: HORMONE REPLACEMENT THERAPY
  5. PREMARIN [Suspect]
  6. PROVERA [Suspect]
  7. VAGIFEM [Suspect]
     Indication: HORMONE REPLACEMENT THERAPY

REACTIONS (3)
  - ENDOMETRIAL CANCER [None]
  - FALLOPIAN TUBE CANCER [None]
  - OVARIAN CANCER [None]
